FAERS Safety Report 8058205-7 (Version None)
Quarter: 2012Q1

REPORT INFORMATION
  Report Type: 
  Country: None (occurrence: None)
  Receive Date: 20120120
  Receipt Date: 20120110
  Transmission Date: 20120608
  Serious: Yes (Hospitalization)
  Sender: FDA-Public Use
  Company Number: US-JNJFOC-20100908567

PATIENT
  Age: 23 Year
  Sex: Female
  Weight: 42.18 kg

DRUGS (4)
  1. ACETAMINOPHEN [Suspect]
     Indication: PAIN
     Dosage: TOOK 15-30 TABLETS ACUTELY (4850MG -9750MG TOTAL)
     Route: 048
     Dates: start: 20100918
  2. ACETAMINOPHEN [Suspect]
     Route: 048
  3. HYDROCODONE BITARTRATE [Concomitant]
     Indication: ABDOMINAL PAIN
  4. OXYCODONE HCL [Concomitant]
     Indication: ABDOMINAL PAIN

REACTIONS (2)
  - INTENTIONAL OVERDOSE [None]
  - HEPATIC ENZYME INCREASED [None]
